FAERS Safety Report 6305056-7 (Version None)
Quarter: 2009Q3

REPORT INFORMATION
  Report Type: 
  Country: None (occurrence: None)
  Receive Date: 20090811
  Receipt Date: 20090730
  Transmission Date: 20100115
  Serious: Yes (Disabling)
  Sender: FDA-Public Use
  Company Number: JP-PFIZER INC-2009228800

PATIENT
  Age: 81 Year

DRUGS (2)
  1. ZYVOX [Suspect]
     Indication: STAPHYLOCOCCAL INFECTION
     Dosage: 600 MG, 2X/DAY
     Route: 048
     Dates: start: 20090613, end: 20090614
  2. VANCOMYCIN [Concomitant]
     Dosage: UNK
     Dates: start: 20090602, end: 20090604

REACTIONS (1)
  - MYOCLONUS [None]
